FAERS Safety Report 23351791 (Version 8)
Quarter: 2025Q2

REPORT INFORMATION
  Report Type: Report from Study
  Country: US (occurrence: US)
  Receive Date: 20231229
  Receipt Date: 20250507
  Transmission Date: 20250716
  Serious: Yes (Hospitalization, Other)
  Sender: TAKEDA
  Company Number: US-TAKEDA-2023TUS055310

PATIENT
  Age: 73 Year
  Sex: Female
  Weight: 68 kg

DRUGS (22)
  1. HUMAN IMMUNOGLOBULIN G [Suspect]
     Active Substance: HUMAN IMMUNOGLOBULIN G
     Indication: Immunodeficiency common variable
     Dosage: 36 GRAM, Q2WEEKS
     Dates: start: 20230328
  2. HUMAN IMMUNOGLOBULIN G [Suspect]
     Active Substance: HUMAN IMMUNOGLOBULIN G
     Dosage: 30 GRAM, Q2WEEKS
  3. HUMAN IMMUNOGLOBULIN G [Suspect]
     Active Substance: HUMAN IMMUNOGLOBULIN G
     Dosage: 24 GRAM, Q2WEEKS
  4. ACETAMINOPHEN [Concomitant]
     Active Substance: ACETAMINOPHEN
  5. CYMBALTA [Concomitant]
     Active Substance: DULOXETINE HYDROCHLORIDE
  6. ZYRTEC [Concomitant]
     Active Substance: CETIRIZINE HYDROCHLORIDE
  7. NEXIUM [Concomitant]
     Active Substance: ESOMEPRAZOLE MAGNESIUM
  8. SINGULAIR [Concomitant]
     Active Substance: MONTELUKAST SODIUM
  9. VITAMIN D3 [Concomitant]
     Active Substance: CHOLECALCIFEROL
  10. TIZANIDINE HYDROCHLORIDE [Concomitant]
     Active Substance: TIZANIDINE HYDROCHLORIDE
  11. LIVALO [Concomitant]
     Active Substance: PITAVASTATIN CALCIUM
  12. TRELEGY ELLIPTA [Concomitant]
     Active Substance: FLUTICASONE FUROATE\UMECLIDINIUM BROMIDE\VILANTEROL TRIFENATATE
  13. CALCIUM [Concomitant]
     Active Substance: CALCIUM
  14. DIPHENHYDRAMINE HYDROCHLORIDE [Concomitant]
     Active Substance: DIPHENHYDRAMINE HYDROCHLORIDE
  15. Lmx [Concomitant]
  16. WELLBUTRIN XL [Concomitant]
     Active Substance: BUPROPION HYDROCHLORIDE
  17. BUPRENORPHINE [Concomitant]
     Active Substance: BUPRENORPHINE
  18. Amlodipine besylate;Benazepril [Concomitant]
  19. OXYCODONE AND ACETAMINOPHEN [Concomitant]
     Active Substance: ACETAMINOPHEN\OXYCODONE HYDROCHLORIDE
  20. EPINEPHRINE [Concomitant]
     Active Substance: EPINEPHRINE
  21. EZETIMIBE [Concomitant]
     Active Substance: EZETIMIBE
  22. LEVALBUTEROL TARTRATE [Concomitant]
     Active Substance: LEVALBUTEROL TARTRATE

REACTIONS (14)
  - Hypobarism [Unknown]
  - Pneumonia [Unknown]
  - Seasonal allergy [Unknown]
  - Sinus disorder [Unknown]
  - Illness [Unknown]
  - Musculoskeletal discomfort [Unknown]
  - Muscle discomfort [Unknown]
  - Arthritis [Unknown]
  - Spondylitis [Unknown]
  - Weight decreased [Unknown]
  - Infusion site discharge [Unknown]
  - Injection site discharge [Unknown]
  - Device infusion issue [Unknown]
  - Headache [Unknown]

NARRATIVE: CASE EVENT DATE: 20230913
